FAERS Safety Report 8215611-5 (Version None)
Quarter: 2012Q1

REPORT INFORMATION
  Report Type: 
  Country: None (occurrence: None)
  Receive Date: 20120316
  Receipt Date: 20120307
  Transmission Date: 20120608
  Serious: Yes (Other)
  Sender: FDA-Public Use
  Company Number: US-ABBOTT-12P-163-0912832-00

PATIENT
  Sex: Male

DRUGS (8)
  1. LORTAB [Suspect]
     Indication: PRODUCT USED FOR UNKNOWN INDICATION
  2. NEURONTIN [Suspect]
     Indication: PAIN
  3. LIDOCAINE [Concomitant]
     Indication: PRODUCT USED FOR UNKNOWN INDICATION
     Dosage: PATCH
  4. VASOTEC [Concomitant]
     Indication: HYPERTENSION
  5. ENALAPRIL [Concomitant]
     Indication: HYPERTENSION
  6. SIMVASTATIN [Concomitant]
     Indication: BLOOD CHOLESTEROL DECREASED
  7. VICODIN [Suspect]
     Indication: HERPES ZOSTER
     Dates: start: 20100101
  8. NEURONTIN [Suspect]
     Indication: HERPES ZOSTER
     Dosage: 1X100MG IN AM AND NOON, 2X300MG AT NIGHT
     Route: 048
     Dates: start: 20100101

REACTIONS (3)
  - THYROID CANCER [None]
  - NEURITIS [None]
  - DIZZINESS [None]
